FAERS Safety Report 5403889-2 (Version None)
Quarter: 2007Q3

REPORT INFORMATION
  Report Type: 
  Country: None (occurrence: None)
  Receive Date: 20070731
  Receipt Date: 20070731
  Transmission Date: 20080115
  Serious: Yes (Hospitalization)
  Sender: FDA-Public Use
  Company Number: None

PATIENT
  Age: 49 Year
  Sex: Male

DRUGS (1)
  1. ACETAMINOPHEN AND HYDROCODONE BITARTRATE [Suspect]
     Dosage: 10TAB ONCE PO
     Route: 048
     Dates: start: 20070726, end: 20070726

REACTIONS (3)
  - ACCIDENTAL EXPOSURE [None]
  - NAUSEA [None]
  - VOMITING [None]
